FAERS Safety Report 9836256 (Version 1)
Quarter: 2014Q1

REPORT INFORMATION
  Report Type: Spontaneous
  Country: GB (occurrence: GB)
  Receive Date: 20140123
  Receipt Date: 20140123
  Transmission Date: 20141002
  Serious: Yes (Other)
  Sender: FDA-Public Use
  Company Number: GB-009507513-1401GBR007376

PATIENT
  Age: 33 Year
  Sex: Female

DRUGS (1)
  1. IMPLANON [Suspect]
     Dosage: UNK
     Route: 059
     Dates: start: 20121205

REACTIONS (4)
  - Abortion spontaneous [Recovered/Resolved]
  - Amenorrhoea [Unknown]
  - Implant site pain [Unknown]
  - Unintended pregnancy [Recovered/Resolved]
